FAERS Safety Report 8518311-7 (Version None)
Quarter: 2012Q3

REPORT INFORMATION
  Report Type: 
  Country: None (occurrence: None)
  Receive Date: 20120718
  Receipt Date: 20120120
  Transmission Date: 20120928
  Serious: No
  Sender: FDA-Public Use
  Company Number: US-BRISTOL-MYERS SQUIBB COMPANY-16362147

PATIENT
  Age: 76 Year
  Sex: Male

DRUGS (2)
  1. COUMADIN [Suspect]
  2. LOVENOX [Suspect]
     Dosage: PARENTAL INJECTION JAN2012-JAN2012 JAN2012-ONG
     Route: 051
     Dates: start: 20120101

REACTIONS (3)
  - INTERNATIONAL NORMALISED RATIO DECREASED [None]
  - INJECTION SITE HAEMATOMA [None]
  - INJECTION SITE INDURATION [None]
